FAERS Safety Report 7488843-1 (Version None)
Quarter: 2011Q2

REPORT INFORMATION
  Report Type: 
  Country: None (occurrence: None)
  Receive Date: 20110518
  Receipt Date: 20110503
  Transmission Date: 20111010
  Serious: Yes (Other)
  Sender: FDA-Public Use
  Company Number: GB-KINGPHARMUSA00001-K201100601

PATIENT
  Age: 51 Year
  Sex: Female

DRUGS (2)
  1. ALSUMA [Suspect]
     Indication: MIGRAINE
     Dosage: UNK
  2. PIZOTIFEN [Suspect]
     Indication: MIGRAINE

REACTIONS (3)
  - CEREBRAL VASOCONSTRICTION [None]
  - BALINT'S SYNDROME [None]
  - VISUAL IMPAIRMENT [None]
